FAERS Safety Report 9698605 (Version 2)
Quarter: 2013Q4

REPORT INFORMATION
  Report Type: Spontaneous
  Country: JP (occurrence: JP)
  Receive Date: 20131120
  Receipt Date: 20131210
  Transmission Date: 20140711
  Serious: Yes (Other)
  Sender: FDA-Public Use
  Company Number: JP-GLAXOSMITHKLINE-B0945909A

PATIENT
  Age: 19 Year
  Sex: Female

DRUGS (1)
  1. VENETLIN [Suspect]
     Indication: ASTHMA
     Dosage: .25MG PER DAY
     Route: 055
     Dates: start: 20131114, end: 20131114

REACTIONS (1)
  - Shock [Recovered/Resolved]
